FAERS Safety Report 11451888 (Version 2)
Quarter: 2015Q4

REPORT INFORMATION
  Report Type: Spontaneous
  Country: US (occurrence: US)
  Receive Date: 20150903
  Receipt Date: 20151210
  Transmission Date: 20160304
  Serious: Yes (Hospitalization, Other)
  Sender: FDA-Public Use
  Company Number: US-MYLANLABS-2015M1028871

PATIENT

DRUGS (2)
  1. CAPECITABINE TABLETS USP [Suspect]
     Active Substance: CAPECITABINE
     Indication: OESOPHAGEAL CARCINOMA
     Dosage: 200MG QAM, 1500MG HS (TWO WEEKS ON AND ONE WEEK OFF)
     Route: 048
     Dates: start: 20150715, end: 20150811
  2. CAPECITABINE TABLETS USP [Suspect]
     Active Substance: CAPECITABINE
     Indication: OFF LABEL USE

REACTIONS (11)
  - Malignant neoplasm progression [Not Recovered/Not Resolved]
  - Herpes zoster [Recovered/Resolved]
  - Rectal ulcer [Recovered/Resolved]
  - Febrile neutropenia [Recovered/Resolved]
  - Listless [Recovered/Resolved]
  - Diarrhoea [Recovering/Resolving]
  - Toxicity to various agents [Recovering/Resolving]
  - Rash [Recovering/Resolving]
  - Palmar-plantar erythrodysaesthesia syndrome [Recovering/Resolving]
  - Mouth ulceration [Recovered/Resolved]
  - Agranulocytosis [Recovered/Resolved]

NARRATIVE: CASE EVENT DATE: 201507
